FAERS Safety Report 24824807 (Version 1)
Quarter: 2025Q1

REPORT INFORMATION
  Report Type: Spontaneous
  Country: US (occurrence: US)
  Receive Date: 20250109
  Receipt Date: 20250109
  Transmission Date: 20250409
  Serious: Yes (Hospitalization)
  Sender: AMGEN
  Company Number: US-AMGEN-USASP2024256918

PATIENT
  Age: 55 Year
  Sex: Male

DRUGS (2)
  1. INFLIXIMAB [Suspect]
     Active Substance: INFLIXIMAB
     Indication: Colitis ulcerative
     Route: 065
  2. HEMOGLOBIN [Concomitant]
     Active Substance: HEMOGLOBIN

REACTIONS (3)
  - Gastrointestinal haemorrhage [Recovered/Resolved]
  - Thrombosis [Unknown]
  - Off label use [Unknown]
